FAERS Safety Report 5190898-4 (Version None)
Quarter: 2006Q4

REPORT INFORMATION
  Report Type: 
  Country: None (occurrence: None)
  Receive Date: 20061222
  Receipt Date: 20050908
  Transmission Date: 20070319
  Serious: Yes (Hospitalization)
  Sender: FDA-Public Use
  Company Number: US-ELI_LILLY_AND_COMPANY-US_0509121693

PATIENT
  Age: 54 Year
  Sex: Female
  Weight: 96.145 kg

DRUGS (10)
  1. MIRTAZAPINE [Concomitant]
     Dates: start: 20010101, end: 20020101
  2. METOPROLOL SUCCINATE [Concomitant]
     Dates: start: 20040301
  3. PREDNISONE TAB [Concomitant]
     Dates: start: 20040801
  4. LEXAPRO                                 /USA/ [Concomitant]
     Dates: start: 20040101
  5. LEXAPRO                                 /USA/ [Concomitant]
     Dates: start: 20050801
  6. AMITRIPTYLINE HCL [Concomitant]
     Dates: start: 20040501, end: 20040901
  7. AMITRIPTYLINE HCL [Concomitant]
     Dates: start: 20050401, end: 20050801
  8. TRIAMTERENE [Concomitant]
     Dates: start: 20011001, end: 20040901
  9. ZYPREXA [Suspect]
     Dosage: 5 MG, UNK
     Route: 048
     Dates: start: 20021201, end: 20040401
  10. ZYPREXA [Suspect]
     Dosage: 2.5 MG, UNK
     Route: 048
     Dates: start: 20040401, end: 20040501

REACTIONS (4)
  - DEPRESSION [None]
  - DIABETES MELLITUS NON-INSULIN-DEPENDENT [None]
  - HYPERTENSION [None]
  - MICROSCOPIC POLYANGIITIS [None]
